FAERS Safety Report 23057359 (Version 1)
Quarter: 2023Q4

REPORT INFORMATION
  Report Type: Spontaneous
  Country: GB (occurrence: GB)
  Receive Date: 20231012
  Receipt Date: 20231012
  Transmission Date: 20240109
  Serious: Yes (Other)
  Sender: FDA-Public Use
  Company Number: None

PATIENT
  Age: 57 Year
  Sex: Female
  Weight: 121 kg

DRUGS (48)
  1. SUMATRIPTAN [Suspect]
     Active Substance: SUMATRIPTAN
     Indication: Product used for unknown indication
     Route: 048
  2. APIXABAN [Concomitant]
     Active Substance: APIXABAN
     Indication: Coagulopathy
     Route: 065
     Dates: start: 20180702, end: 20230721
  3. BECLOMETHASONE DIPROPIONATE [Concomitant]
     Active Substance: BECLOMETHASONE DIPROPIONATE
     Indication: Product used for unknown indication
     Route: 065
     Dates: start: 20030728, end: 20230807
  4. BECONASE AQ [Concomitant]
     Active Substance: BECLOMETHASONE DIPROPIONATE MONOHYDRATE
     Indication: Product used for unknown indication
     Route: 065
     Dates: start: 19920720, end: 20230807
  5. BECLOMETHASONE DIPROPIONATE [Concomitant]
     Active Substance: BECLOMETHASONE DIPROPIONATE
     Indication: Product used for unknown indication
     Route: 065
     Dates: start: 19910824, end: 20230807
  6. ETHINYL ESTRADIOL\NORETHINDRONE [Concomitant]
     Active Substance: ETHINYL ESTRADIOL\NORETHINDRONE
     Indication: Product used for unknown indication
     Route: 065
     Dates: start: 19910307, end: 20230807
  7. CARBOCYSTEINE [Concomitant]
     Active Substance: CARBOCYSTEINE
     Indication: Product used for unknown indication
     Route: 065
     Dates: start: 20201120, end: 20230807
  8. CHLORAMPHENICOL [Concomitant]
     Active Substance: CHLORAMPHENICOL
     Indication: Product used for unknown indication
     Route: 065
     Dates: start: 19910824, end: 20230807
  9. CHLORPHENIRAMINE MALEATE [Concomitant]
     Active Substance: CHLORPHENIRAMINE MALEATE
     Indication: Product used for unknown indication
     Route: 065
     Dates: start: 19930507, end: 20230807
  10. CIPROFLOXACIN [Concomitant]
     Active Substance: CIPROFLOXACIN
     Indication: Product used for unknown indication
     Dosage: ONE TO BE TAKEN TWICE A DAY FOR CHEST...
     Route: 065
     Dates: start: 20230731, end: 20230801
  11. CITALOPRAM [Concomitant]
     Active Substance: CITALOPRAM HYDROBROMIDE
     Indication: Product used for unknown indication
     Dosage: USE AS DIRECTED
     Route: 065
     Dates: start: 20081110, end: 20230807
  12. ACETAMINOPHEN\PROPOXYPHENE HYDROCHLORIDE [Concomitant]
     Active Substance: ACETAMINOPHEN\PROPOXYPHENE HYDROCHLORIDE
     Indication: Product used for unknown indication
     Dosage: 1-2 UP TO 4 TIMES A DAY
     Route: 065
     Dates: start: 19910824, end: 20230807
  13. COMIRNATY (TOZINAMERAN) [Concomitant]
     Active Substance: TOZINAMERAN
     Indication: Product used for unknown indication
     Route: 030
     Dates: start: 20230510, end: 20230511
  14. Dalacin [Concomitant]
     Indication: Product used for unknown indication
     Route: 065
     Dates: start: 19930111, end: 20230807
  15. Depo medrone [Concomitant]
     Indication: Product used for unknown indication
     Route: 065
     Dates: start: 20230620, end: 20230802
  16. DERMOL [Concomitant]
     Active Substance: BENZALKONIUM CHLORIDE\CHLORHEXIDINE HYDROCHLORIDE\ISOPROPYL MYRISTATE\PARAFFIN
     Indication: Product used for unknown indication
     Dosage: USE AS A SOAP SUBSTITUTE
     Route: 065
     Dates: start: 20230515, end: 20230807
  17. DIAZEPAM [Concomitant]
     Active Substance: DIAZEPAM
     Indication: Anxiety
     Dosage: 1-2
     Route: 065
     Dates: start: 19930324, end: 20230807
  18. DICLOFENAC SODIUM [Concomitant]
     Active Substance: DICLOFENAC\DICLOFENAC SODIUM
     Indication: Product used for unknown indication
     Route: 065
     Dates: start: 19920519, end: 20230807
  19. DOXAZOSIN [Concomitant]
     Active Substance: DOXAZOSIN MESYLATE
     Indication: Blood pressure measurement
     Route: 065
     Dates: start: 20161205, end: 20230807
  20. EMEDASTINE DIFUMARATE [Concomitant]
     Active Substance: EMEDASTINE DIFUMARATE
     Indication: Product used for unknown indication
     Route: 065
     Dates: start: 20020405, end: 20230807
  21. EPIPEN [Concomitant]
     Active Substance: EPINEPHRINE
     Indication: Product used for unknown indication
     Dosage: USE AS DIRECTED
     Route: 065
     Dates: start: 20070501, end: 20230807
  22. ESTRADIOL [Concomitant]
     Active Substance: ESTRADIOL
     Indication: Product used for unknown indication
     Dosage: AT NIGHT
     Route: 067
     Dates: start: 20220411, end: 20230807
  23. FEXOFENADINE [Concomitant]
     Active Substance: FEXOFENADINE HYDROCHLORIDE
     Indication: Product used for unknown indication
     Route: 065
     Dates: start: 20220422, end: 20230807
  24. FLUCONAZOLE [Concomitant]
     Active Substance: FLUCONAZOLE
     Indication: Product used for unknown indication
     Dosage: A SINGLE DOSE
     Route: 065
     Dates: start: 20230515, end: 20230613
  25. FLUTICASONE [Concomitant]
     Active Substance: FLUTICASONE
     Indication: Product used for unknown indication
     Route: 055
     Dates: start: 20020130, end: 20230807
  26. BECLOMETHASONE\FORMOTEROL [Concomitant]
     Active Substance: BECLOMETHASONE\FORMOTEROL
     Indication: Product used for unknown indication
     Route: 065
     Dates: start: 20220422, end: 20230807
  27. AMPHOTERICIN B [Concomitant]
     Active Substance: AMPHOTERICIN B
     Indication: Product used for unknown indication
     Dosage: SUCK
     Route: 065
     Dates: start: 19930722, end: 20230807
  28. HAY CROM [Concomitant]
     Indication: Product used for unknown indication
     Dosage: 1-2 DROPS 4 TIMES/DAY
     Route: 065
     Dates: start: 19990615, end: 20230807
  29. IBUPROFEN [Concomitant]
     Active Substance: IBUPROFEN
     Indication: Product used for unknown indication
     Route: 065
     Dates: start: 19971029, end: 20230807
  30. LANSOPRAZOLE [Concomitant]
     Active Substance: LANSOPRAZOLE
     Indication: Gastrooesophageal reflux disease
     Dosage: MORNING
     Route: 065
     Dates: start: 20200217, end: 20230807
  31. MEFENAMIC ACID [Concomitant]
     Active Substance: MEFENAMIC ACID
     Indication: Product used for unknown indication
     Route: 065
     Dates: start: 19940919, end: 20230807
  32. MINOCYCLINE [Concomitant]
     Active Substance: MINOCYCLINE HYDROCHLORIDE
     Indication: Product used for unknown indication
     Route: 065
     Dates: start: 19950623, end: 20230807
  33. MOMETASONE [Concomitant]
     Active Substance: MOMETASONE
     Indication: Product used for unknown indication
     Dosage: SPRAYS IN EACH NOSTRIL
     Route: 045
     Dates: start: 20180620, end: 20230807
  34. MONTELUKAST [Concomitant]
     Active Substance: MONTELUKAST SODIUM
     Indication: Rhinitis allergic
     Dosage: NIGHT
     Route: 065
     Dates: start: 20120228, end: 20230807
  35. BECLOMETHASONE DIPROPIONATE [Concomitant]
     Active Substance: BECLOMETHASONE DIPROPIONATE
     Indication: Product used for unknown indication
     Route: 065
     Dates: start: 19970602, end: 20230807
  36. NASONEX [Concomitant]
     Active Substance: MOMETASONE FUROATE
     Indication: Product used for unknown indication
     Dosage: SPRAYS
     Route: 065
     Dates: start: 20120228, end: 20230807
  37. NORIDAY [Concomitant]
     Active Substance: MESTRANOL\NORETHINDRONE
     Indication: Product used for unknown indication
     Route: 065
     Dates: start: 19920604, end: 20230807
  38. PAROXETINE [Concomitant]
     Active Substance: PAROXETINE
     Indication: Product used for unknown indication
     Route: 065
     Dates: start: 20020405, end: 20230807
  39. CHLORPHENIRAMINE MALEATE [Concomitant]
     Active Substance: CHLORPHENIRAMINE MALEATE
     Indication: Product used for unknown indication
     Route: 065
     Dates: start: 19950411, end: 20230807
  40. PREDNISOLONE [Concomitant]
     Active Substance: PREDNISOLONE
     Indication: Lower respiratory tract infection
     Dosage: SIX TO BE TAKEN EACH DAY WITH FOOD
     Route: 065
     Dates: start: 19930628, end: 20230807
  41. FERROUS FUMARATE\FOLIC ACID [Concomitant]
     Active Substance: FERROUS FUMARATE\FOLIC ACID
     Indication: Product used for unknown indication
     Route: 065
     Dates: start: 20000330, end: 20230807
  42. ACETAMINOPHEN\DIHYDROCODEINE [Concomitant]
     Active Substance: ACETAMINOPHEN\DIHYDROCODEINE
     Indication: Product used for unknown indication
     Route: 065
     Dates: start: 19951011, end: 20230807
  43. ALBUTEROL [Concomitant]
     Active Substance: ALBUTEROL
     Indication: Product used for unknown indication
     Dosage: 2 DOSES
     Route: 055
     Dates: start: 19990211, end: 20230807
  44. SANOMIGRAN [Concomitant]
     Indication: Product used for unknown indication
     Dosage: NIGHT
     Route: 065
     Dates: start: 19920130, end: 20230807
  45. PAROXETINE HYDROCHLORIDE [Concomitant]
     Active Substance: PAROXETINE HYDROCHLORIDE
     Indication: Product used for unknown indication
     Route: 065
     Dates: start: 19971007, end: 20230807
  46. CROMOLYN SODIUM [Concomitant]
     Active Substance: CROMOLYN SODIUM
     Indication: Product used for unknown indication
     Dosage: PRESERVATIVE FREE. TO US...
     Route: 065
     Dates: start: 20000914, end: 20230807
  47. SPIRIVA RESPIMAT [Concomitant]
     Active Substance: TIOTROPIUM BROMIDE
     Indication: Product used for unknown indication
     Route: 055
     Dates: start: 20161220, end: 20230807
  48. CARBOMER [Concomitant]
     Active Substance: CARBOMER
     Indication: Product used for unknown indication
     Dosage: ONE DROP
     Route: 065
     Dates: start: 20001003, end: 20230807

REACTIONS (1)
  - Asthma [Recovered/Resolved]
